FAERS Safety Report 19819613 (Version 1)
Quarter: 2021Q3

REPORT INFORMATION
  Report Type: Spontaneous
  Country: UA (occurrence: UA)
  Receive Date: 20210913
  Receipt Date: 20210913
  Transmission Date: 20211014
  Serious: Yes (Other)
  Sender: FDA-Public Use
  Company Number: UA-DRREDDYS-SPO/UKR/21/0139807

PATIENT
  Sex: Male

DRUGS (2)
  1. CIPROLET A [Suspect]
     Active Substance: CIPROFLOXACIN\TINIDAZOLE
     Indication: INFECTION
     Route: 048
     Dates: start: 20210830, end: 20210902
  2. LORATIDINE [Concomitant]
     Active Substance: LORATADINE
     Indication: PRODUCT USED FOR UNKNOWN INDICATION
     Route: 048
     Dates: start: 20210830

REACTIONS (4)
  - Pruritus [Recovered/Resolved]
  - Discomfort [Recovered/Resolved]
  - Hallucination [Recovered/Resolved]
  - Oropharyngeal plaque [Recovered/Resolved]

NARRATIVE: CASE EVENT DATE: 20210901
